FAERS Safety Report 11225168 (Version 2)
Quarter: 2015Q3

REPORT INFORMATION
  Report Type: Spontaneous
  Country: US (occurrence: US)
  Receive Date: 20150629
  Receipt Date: 20150706
  Transmission Date: 20151125
  Serious: No
  Sender: FDA-Public Use
  Company Number: US-PFIZER INC-2015212652

PATIENT
  Age: 73 Year
  Sex: Female
  Weight: 86 kg

DRUGS (1)
  1. NORPACE [Suspect]
     Active Substance: DISOPYRAMIDE PHOSPHATE
     Indication: ARRHYTHMIA
     Dosage: 150 MG, UNK

REACTIONS (1)
  - Drug ineffective [Unknown]
